FAERS Safety Report 11145983 (Version 1)
Quarter: 2015Q2

REPORT INFORMATION
  Report Type: Spontaneous
  Country: US (occurrence: US)
  Receive Date: 20150528
  Receipt Date: 20150528
  Transmission Date: 20150821
  Serious: Yes (Disabling, Other)
  Sender: FDA-Public Use
  Company Number: US-GLAXOSMITHKLINE-US2015GSK071574

PATIENT
  Age: 49 Year
  Sex: Female

DRUGS (4)
  1. ALLI [Suspect]
     Active Substance: ORLISTAT
     Indication: PRODUCT USED FOR UNKNOWN INDICATION
     Dosage: 1DF, TID, ORAL
     Route: 048
  2. ESTROGENS CONJUGATED\PROGESTERONE [Suspect]
     Active Substance: ESTROGENS, CONJUGATED\PROGESTERONE
     Indication: PRODUCT USED FOR UNKNOWN INDICATION
     Dosage: 1DF, DAILY, ORAL
     Route: 048
  3. MELOXICAM. [Concomitant]
     Active Substance: MELOXICAM
     Indication: PRODUCT USED FOR UNKNOWN INDICATION
  4. FLUOXETINE [Suspect]
     Active Substance: FLUOXETINE\FLUOXETINE HYDROCHLORIDE
     Indication: PRODUCT USED FOR UNKNOWN INDICATION
     Dosage: 20MG, DAILY, ORAL
     Route: 048

REACTIONS (4)
  - Obesity [Unknown]
  - Depression [Unknown]
  - Menopausal symptoms [Unknown]
  - Condition aggravated [Unknown]
